FAERS Safety Report 6322008-1 (Version None)
Quarter: 2009Q3

REPORT INFORMATION
  Report Type: 
  Country: None (occurrence: None)
  Receive Date: 20090824
  Receipt Date: 20090811
  Transmission Date: 20100115
  Serious: Yes (Hospitalization, Other)
  Sender: FDA-Public Use
  Company Number: US-ELI_LILLY_AND_COMPANY-US200907001194

PATIENT
  Sex: Female

DRUGS (19)
  1. FORTEO [Suspect]
     Indication: OSTEOPOROSIS POSTMENOPAUSAL
     Dosage: 20 UG, DAILY (1/D)
     Route: 058
     Dates: start: 20090519
  2. FORTEO [Suspect]
  3. CYMBALTA [Concomitant]
     Dosage: 60 MG, DAILY (1/D)
     Dates: start: 20080101
  4. COMBIVENT [Concomitant]
  5. ADVAIR HFA [Concomitant]
     Dosage: 250/50 1 PUFF BID
  6. PREDNISONE TAB [Concomitant]
     Dosage: 5 MG, DAILY (1/D)
  7. ACTONEL [Concomitant]
     Dosage: 35 MG, WEEKLY (1/W)
  8. RISPERDAL [Concomitant]
     Dosage: .5
  9. SINGULAIR [Concomitant]
     Dosage: 10 MG, DAILY (1/D)
  10. FLUOXETINE [Concomitant]
     Dosage: 10 MG, UNK
  11. CARBIDOPA-LEVODOPA [Concomitant]
     Indication: PARKINSON'S DISEASE
     Dosage: 25-100
  12. PROZAC [Concomitant]
     Dosage: 20 MG, DAILY (1/D)
  13. NEURONTIN [Concomitant]
     Dosage: 300 MG, 3/D
  14. COMPAZINE [Concomitant]
     Indication: NAUSEA
     Dosage: 10 MG, EVERY 6 HRS
  15. ATIVAN [Concomitant]
     Dosage: 1 MG, DAILY (1/D)
  16. VICODIN [Concomitant]
     Indication: PAIN
     Dosage: 5-500 Q 4 H PRN
  17. HIPREX [Concomitant]
     Dosage: 1 G, DAILY (1/D)
  18. PRILOSEC [Concomitant]
     Dosage: 20 MG, DAILY (1/D)
  19. OXYGEN [Concomitant]
     Dosage: CHRONIC HOME O2

REACTIONS (7)
  - BACK PAIN [None]
  - CHRONIC OBSTRUCTIVE PULMONARY DISEASE [None]
  - DECREASED APPETITE [None]
  - DEHYDRATION [None]
  - FALL [None]
  - HAND FRACTURE [None]
  - URINARY TRACT INFECTION [None]
